FAERS Safety Report 20341028 (Version 1)
Quarter: 2022Q1

REPORT INFORMATION
  Report Type: Spontaneous
  Country: IN (occurrence: None)
  Receive Date: 20220117
  Receipt Date: 20220117
  Transmission Date: 20220423
  Serious: Yes (Hospitalization, Other)
  Sender: FDA-Public Use
  Company Number: IN-Fresenius Kabi-FK202200527

PATIENT
  Age: 49 Year
  Sex: Female

DRUGS (1)
  1. CISPLATIN [Suspect]
     Active Substance: CISPLATIN
     Indication: Cervix carcinoma stage II
     Dosage: 3 CYCLES
     Route: 065

REACTIONS (1)
  - Cerebral venous thrombosis [Recovered/Resolved]
